FAERS Safety Report 25200668 (Version 1)
Quarter: 2025Q2

REPORT INFORMATION
  Report Type: Report from Study
  Country: US (occurrence: US)
  Receive Date: 20250415
  Receipt Date: 20250415
  Transmission Date: 20250717
  Serious: Yes (Death)
  Sender: BAYER
  Company Number: US-BAYER-2025A050442

PATIENT
  Sex: Female

DRUGS (1)
  1. ADEMPAS [Suspect]
     Active Substance: RIOCIGUAT
     Dates: start: 20140417

REACTIONS (1)
  - Death [Fatal]
